FAERS Safety Report 15919347 (Version 1)
Quarter: 2019Q1

REPORT INFORMATION
  Report Type: Spontaneous
  Country: US (occurrence: US)
  Receive Date: 20190205
  Receipt Date: 20190205
  Transmission Date: 20190417
  Serious: Yes (Hospitalization)
  Sender: FDA-Public Use
  Company Number: US-OTSUKA-2018_024604

PATIENT
  Sex: Female

DRUGS (1)
  1. ABILIFY [Suspect]
     Active Substance: ARIPIPRAZOLE
     Indication: DEPRESSION
     Dosage: 30-40 MG
     Route: 065
     Dates: start: 20140513, end: 20150318

REACTIONS (10)
  - Obsessive-compulsive disorder [Unknown]
  - Impulse-control disorder [Unknown]
  - Gambling disorder [Recovered/Resolved]
  - Mental disorder [Unknown]
  - Partner stress [Unknown]
  - Loss of employment [Unknown]
  - Compulsive shopping [Unknown]
  - Weight increased [Unknown]
  - Weight decreased [Unknown]
  - Economic problem [Unknown]

NARRATIVE: CASE EVENT DATE: 2015
